FAERS Safety Report 14836093 (Version 1)
Quarter: 2018Q2

REPORT INFORMATION
  Report Type: Spontaneous
  Country: US (occurrence: US)
  Receive Date: 20180502
  Receipt Date: 20180502
  Transmission Date: 20180711
  Serious: No
  Sender: FDA-Public Use
  Company Number: US-PFIZER INC-2018172470

PATIENT
  Sex: Female

DRUGS (2)
  1. LYRICA [Suspect]
     Active Substance: PREGABALIN
     Indication: BACK PAIN
     Dosage: 600 MG, PER DAY
  2. LYRICA [Suspect]
     Active Substance: PREGABALIN
     Dosage: 300 MG, THREE TIMES A DAY (TID)

REACTIONS (2)
  - Intentional overdose [Unknown]
  - Visual impairment [Unknown]
